FAERS Safety Report 20540516 (Version 1)
Quarter: 2022Q1

REPORT INFORMATION
  Report Type: Spontaneous
  Country: ES (occurrence: ES)
  Receive Date: 20220302
  Receipt Date: 20220302
  Transmission Date: 20220424
  Serious: Yes (Hospitalization)
  Sender: FDA-Public Use
  Company Number: ES-MYLANLABS-2022M1015919

PATIENT
  Age: 8 Decade
  Sex: Male

DRUGS (11)
  1. BENDAMUSTINE HYDROCHLORIDE [Suspect]
     Active Substance: BENDAMUSTINE HYDROCHLORIDE
     Indication: Chronic lymphocytic leukaemia
     Dosage: UNK
     Route: 065
     Dates: start: 2016
  2. LEVOFLOXACIN [Suspect]
     Active Substance: LEVOFLOXACIN
     Indication: COVID-19
     Dosage: TWO COURSES
     Route: 065
     Dates: start: 2021
  3. RITUXIMAB [Suspect]
     Active Substance: RITUXIMAB
     Indication: Chronic lymphocytic leukaemia
     Dosage: UNK
     Route: 065
     Dates: start: 2016
  4. OBINUTUZUMAB [Suspect]
     Active Substance: OBINUTUZUMAB
     Indication: Chronic lymphocytic leukaemia
     Dosage: UNK
     Route: 065
  5. HUMAN IMMUNOGLOBULIN G [Suspect]
     Active Substance: HUMAN IMMUNOGLOBULIN G
     Indication: COVID-19
     Dosage: 20 GRAM, ONCE (SINGLE DOSE)
     Route: 042
     Dates: start: 2021
  6. DEXAMETHASONE [Suspect]
     Active Substance: DEXAMETHASONE
     Indication: COVID-19
     Dosage: 4 MILLIGRAM, QD (TWO COURSES)
     Route: 065
     Dates: start: 2021
  7. DEXAMETHASONE [Suspect]
     Active Substance: DEXAMETHASONE
     Dosage: 6 MILLIGRAM, QD
     Route: 065
     Dates: start: 2021
  8. CYCLOSPORINE [Suspect]
     Active Substance: CYCLOSPORINE
     Indication: COVID-19
     Dosage: UNK UNK, QD ({5 MG/KG)
     Route: 065
     Dates: start: 2021
  9. COVID-19 CONVALESCENT PLASMA [Suspect]
     Active Substance: COVID-19 CONVALESCENT PLASMA
     Indication: COVID-19
     Dosage: 3 DOSAGE FORM
     Dates: start: 2021
  10. PLITIDEPSIN [Suspect]
     Active Substance: PLITIDEPSIN
     Indication: COVID-19
     Dosage: 2.5 MILLIGRAM, QD (ALSO RECEIVED SECOND EQUIVALENT COURSE OF PLITIDEPSIN)
     Route: 065
     Dates: start: 2021
  11. BEMIPARIN SODIUM [Concomitant]
     Active Substance: BEMIPARIN SODIUM
     Indication: Drug therapy
     Dosage: UNK
     Route: 065
     Dates: start: 2021

REACTIONS (5)
  - COVID-19 [Recovered/Resolved]
  - Condition aggravated [Recovered/Resolved]
  - COVID-19 pneumonia [Recovered/Resolved]
  - Lymphopenia [Recovered/Resolved]
  - Off label use [Unknown]

NARRATIVE: CASE EVENT DATE: 20210101
